FAERS Safety Report 9010200 (Version 1)
Quarter: 2013Q1

REPORT INFORMATION
  Report Type: Spontaneous
  Country: US (occurrence: US)
  Receive Date: 20130110
  Receipt Date: 20130110
  Transmission Date: 20140127
  Serious: Yes (Hospitalization)
  Sender: FDA-Public Use
  Company Number: US-BAYER-2013-001484

PATIENT
  Age: 46 Year
  Sex: Female
  Weight: 81.18 kg

DRUGS (7)
  1. YAZ [Suspect]
     Indication: CONTRACEPTION
  2. GIANVI [Suspect]
  3. MUCINEX [Concomitant]
     Dosage: 600 MG, UNK
     Route: 048
  4. ZYRTEC [Concomitant]
     Dosage: 10 MG, UNK
     Route: 048
  5. PRILOSEC [Concomitant]
     Dosage: 20 MG, UNK
  6. TYLENOL W/CODEINE NO. 3 [Concomitant]
     Dosage: 300 MG- 30 MG EVERY 6 HOURS AS NEEDED
     Route: 048
  7. VICODIN [Concomitant]

REACTIONS (3)
  - Deep vein thrombosis [None]
  - Deep vein thrombosis [None]
  - Pulmonary embolism [Recovered/Resolved]
